FAERS Safety Report 4277699-6 (Version None)
Quarter: 2004Q1

REPORT INFORMATION
  Report Type: 
  Country: None (occurrence: None)
  Receive Date: 20040121
  Receipt Date: 20040106
  Transmission Date: 20041129
  Serious: Yes (Hospitalization)
  Sender: FDA-Public Use
  Company Number: EWC031036648

PATIENT
  Age: 76 Year
  Sex: Male
  Weight: 45 kg

DRUGS (6)
  1. GEMCITABINE HYDROCHLORIDE-IV (GEMCITABINE) [Suspect]
     Indication: NON-SMALL CELL LUNG CANCER
     Dosage: 800 MG/M2/3 OTHER
     Route: 050
     Dates: start: 20030723
  2. PHYLLOCONTIN (AMINOPHYLLINE) [Concomitant]
  3. PASPERTASE [Concomitant]
  4. FUROSEMIDE [Concomitant]
  5. LOSEC [Concomitant]
  6. THROUGH [Concomitant]

REACTIONS (4)
  - CELLULITIS [None]
  - OEDEMA PERIPHERAL [None]
  - PLEURAL EFFUSION [None]
  - PYREXIA [None]
